FAERS Safety Report 16968875 (Version 1)
Quarter: 2019Q4

REPORT INFORMATION
  Report Type: Spontaneous
  Country: CA (occurrence: CA)
  Receive Date: 20191029
  Receipt Date: 20191029
  Transmission Date: 20200122
  Serious: Yes (Other)
  Sender: FDA-Public Use
  Company Number: CA-ROCHE-2447428

PATIENT
  Age: 40 Year
  Sex: Female

DRUGS (4)
  1. TRIPROLIDINE HYDROCHLORIDE. [Suspect]
     Active Substance: TRIPROLIDINE HYDROCHLORIDE
     Indication: INFLUENZA
     Route: 048
  2. PSEUDOEPHEDRINE. [Suspect]
     Active Substance: PSEUDOEPHEDRINE HYDROCHLORIDE
     Indication: INFLUENZA
     Route: 048
  3. TAMIFLU [Suspect]
     Active Substance: OSELTAMIVIR PHOSPHATE
     Indication: INFLUENZA
     Route: 048
  4. CODEINE [Suspect]
     Active Substance: CODEINE
     Indication: INFLUENZA
     Route: 048

REACTIONS (6)
  - Chest discomfort [Not Recovered/Not Resolved]
  - Nausea [Not Recovered/Not Resolved]
  - Feeling abnormal [Not Recovered/Not Resolved]
  - Medication error [Not Recovered/Not Resolved]
  - Vomiting [Not Recovered/Not Resolved]
  - Dyspnoea [Not Recovered/Not Resolved]
